FAERS Safety Report 8885018 (Version 2)
Quarter: 2012Q4

REPORT INFORMATION
  Report Type: 
  Country: US (occurrence: US)
  Receive Date: 20121102
  Receipt Date: 20121119
  Transmission Date: 20130627
  Serious: Yes (Other)
  Sender: FDA-Public Use
  Company Number: US-PFIZER INC-2012271646

PATIENT
  Age: 85 Year
  Sex: Male
  Weight: 79 kg

DRUGS (3)
  1. LYRICA [Suspect]
     Indication: PAIN IN LEG
     Dosage: 150 mg, 3x/day
     Route: 048
     Dates: start: 20120821
  2. LYRICA [Suspect]
     Dosage: 150 mg, 3x/day
     Dates: start: 201208, end: 201209
  3. COUMADIN [Concomitant]
     Indication: HEART DISORDER
     Dosage: 3 mg daily for five days in a week and 2 mg daily for remaining two days in a week
     Route: 048

REACTIONS (4)
  - Oedema peripheral [Recovered/Resolved]
  - Joint swelling [Recovered/Resolved]
  - Pain in extremity [Unknown]
  - Eye disorder [Unknown]
